FAERS Safety Report 23439626 (Version 1)
Quarter: 2024Q1

REPORT INFORMATION
  Report Type: Spontaneous
  Country: NZ (occurrence: NZ)
  Receive Date: 20240124
  Receipt Date: 20240124
  Transmission Date: 20240409
  Serious: Yes (Hospitalization, Other)
  Sender: FDA-Public Use
  Company Number: NZ-EPICPHARMA-NZ-2024EPCLIT00115

PATIENT
  Age: 75 Year
  Sex: Female

DRUGS (4)
  1. TRANEXAMIC ACID [Suspect]
     Active Substance: TRANEXAMIC ACID
     Indication: Haemorrhage prophylaxis
     Route: 042
  2. PROPOFOL [Concomitant]
     Active Substance: PROPOFOL
     Route: 065
  3. REMIFENTANIL [Concomitant]
     Active Substance: REMIFENTANIL
     Route: 065
  4. METARAMINOL [Concomitant]
     Active Substance: METARAMINOL
     Route: 065

REACTIONS (3)
  - Acute myocardial infarction [Unknown]
  - Condition aggravated [Unknown]
  - Contraindicated product administered [Unknown]
